FAERS Safety Report 15255375 (Version 1)
Quarter: 2018Q3

REPORT INFORMATION
  Report Type: Spontaneous
  Country: CN (occurrence: CN)
  Receive Date: 20180808
  Receipt Date: 20180808
  Transmission Date: 20181010
  Serious: Yes (Death)
  Sender: FDA-Public Use
  Company Number: CN-PFIZER INC-2018316189

PATIENT
  Age: 65 Year
  Sex: Female

DRUGS (1)
  1. CELEBREX [Suspect]
     Active Substance: CELECOXIB
     Indication: PYREXIA
     Dosage: 1 TABLET, SINGLE
     Route: 048
     Dates: start: 20180727, end: 20180727

REACTIONS (1)
  - Intestinal haemorrhage [Fatal]

NARRATIVE: CASE EVENT DATE: 20180727
